FAERS Safety Report 5529139-4 (Version None)
Quarter: 2007Q4

REPORT INFORMATION
  Report Type: 
  Country: None (occurrence: None)
  Receive Date: 20071129
  Receipt Date: 20070126
  Transmission Date: 20080405
  Serious: No
  Sender: FDA-Public Use
  Company Number: A0637205A

PATIENT
  Age: 49 Year
  Sex: Male

DRUGS (3)
  1. BUPROPION HYDROCHLORIDE [Suspect]
     Dosage: 150MG TWICE PER DAY
     Route: 048
     Dates: start: 20070119
  2. ASPIRIN [Concomitant]
  3. MOTRIN [Concomitant]

REACTIONS (9)
  - ANXIETY [None]
  - CHEST PAIN [None]
  - DRY SKIN [None]
  - DRY THROAT [None]
  - EYE PRURITUS [None]
  - INFLUENZA LIKE ILLNESS [None]
  - INSOMNIA [None]
  - PAIN [None]
  - PAIN IN EXTREMITY [None]
